FAERS Safety Report 5839461-X (Version None)
Quarter: 2008Q3

REPORT INFORMATION
  Report Type: 
  Country: None (occurrence: None)
  Receive Date: 20080807
  Receipt Date: 20080724
  Transmission Date: 20090109
  Serious: Yes (Other)
  Sender: FDA-Public Use
  Company Number: 2008SP013304

PATIENT
  Age: 21 Year
  Sex: Female

DRUGS (2)
  1. REBETOL [Suspect]
     Indication: HEPATITIS C
     Dates: start: 20060312, end: 20070415
  2. PEGASYS [Suspect]
     Indication: HEPATITIS C
     Dates: start: 20060312, end: 20070415

REACTIONS (1)
  - AUTOIMMUNE THYROIDITIS [None]
